FAERS Safety Report 10252001 (Version 4)
Quarter: 2014Q3

REPORT INFORMATION
  Report Type: Spontaneous
  Country: IT (occurrence: None)
  Receive Date: 20140619
  Receipt Date: 20140714
  Transmission Date: 20150326
  Serious: Yes (Hospitalization)
  Sender: FDA-Public Use
  Company Number: AUR-APL-2014-06428

PATIENT
  Age: 61 Year
  Sex: Male

DRUGS (8)
  1. VASORETIC [Suspect]
     Active Substance: ENALAPRIL MALEATE\HYDROCHLOROTHIAZIDE
     Indication: PRODUCT USED FOR UNKNOWN INDICATION
     Dosage: 227.5 MG TOTAL, ONE TABLET/DAY, ORAL
     Route: 048
     Dates: start: 20140423, end: 20140423
  2. ZOLPIDEM TARTRATE. [Suspect]
     Active Substance: ZOLPIDEM TARTRATE
     Indication: PRODUCT USED FOR UNKNOWN INDICATION
     Dosage: 50 MG, TOTAL, ORAL
     Route: 048
     Dates: start: 20140423, end: 20140423
  3. ZEFFIX [Suspect]
     Active Substance: LAMIVUDINE
     Indication: PRODUCT USED FOR UNKNOWN INDICATION
     Dosage: 140 MG, TOTAL, ORAL
     Route: 048
     Dates: start: 20140423, end: 20140423
  4. METFORMIN [Suspect]
     Active Substance: METFORMIN HYDROCHLORIDE
     Indication: PRODUCT USED FOR UNKNOWN INDICATION
     Route: 048
     Dates: start: 20140423, end: 20140423
  5. LANSOPRAZOLE. [Suspect]
     Active Substance: LANSOPRAZOLE
     Indication: PRODUCT USED FOR UNKNOWN INDICATION
     Dosage: 105 MG, TOTAL, 3 TABLETS/DAY, ORAL
     Route: 048
     Dates: start: 20140423, end: 20140423
  6. CITALOPRAM FILM-COATED TABLET (CITALOPRAM) [Suspect]
     Active Substance: CITALOPRAM HYDROBROMIDE
     Indication: PRODUCT USED FOR UNKNOWN INDICATION
     Dosage: 280 MG TOTAL , 2 TABLETS/DAY, ORAL
     Route: 048
     Dates: start: 20140423, end: 20140423
  7. SIMVASTATIN. [Suspect]
     Active Substance: SIMVASTATIN
     Indication: PRODUCT USED FOR UNKNOWN INDICATION
     Dosage: 280 MG TOTAL, 1 TABLET/DAY
     Route: 048
     Dates: start: 20140423, end: 20140423
  8. DENIBAN (AMISULPRIDE) TABLET, 50 MG [Suspect]
     Active Substance: AMISULPRIDE
     Indication: PRODUCT USED FOR UNKNOWN INDICATION
     Dosage: 500 MG TOTAL, ORAL
     Route: 048
     Dates: start: 20140423, end: 20140423

REACTIONS (7)
  - Sopor [None]
  - Depressed level of consciousness [None]
  - Hypotension [None]
  - Drug abuse [None]
  - Intentional self-injury [None]
  - Metabolic acidosis [None]
  - Conduction disorder [None]

NARRATIVE: CASE EVENT DATE: 20140423
